FAERS Safety Report 15887503 (Version 2)
Quarter: 2019Q1

REPORT INFORMATION
  Report Type: Spontaneous
  Country: BG (occurrence: BG)
  Receive Date: 20190130
  Receipt Date: 20190303
  Transmission Date: 20190417
  Serious: Yes (Other)
  Sender: FDA-Public Use
  Company Number: BG-ACCORD-103489

PATIENT
  Age: 50 Year
  Sex: Male

DRUGS (7)
  1. LEUPRORELIN/LEUPRORELIN ACETATE [Suspect]
     Active Substance: LEUPROLIDE ACETATE
     Indication: PROSTATE CANCER
     Dosage: 4 APPLICATIONS
     Dates: start: 20141029
  2. CABAZITAXEL [Suspect]
     Active Substance: CABAZITAXEL
     Indication: PROSTATE CANCER
     Dosage: 12 COURSES
     Route: 065
     Dates: start: 20160519, end: 20170126
  3. RADIUM 223 [Suspect]
     Active Substance: RADIUM RA-223 DICHLORIDE
     Indication: PROSTATE CANCER
     Dosage: DOSAGE FORM: UNSPECIFIED
     Route: 042
     Dates: start: 20170418, end: 20170722
  4. DENOSUMAB [Suspect]
     Active Substance: DENOSUMAB
     Indication: PROSTATE CANCER
     Dosage: DOSAGE FORM: UNSPECIFIED
     Dates: start: 20141029
  5. DOCETAXEL. [Suspect]
     Active Substance: DOCETAXEL
     Indication: PROSTATE CANCER
     Dosage: 5 COURSES: BECAUSE OF THE RISE IN PSA, CHEMOTHERAPY HAD BEGUN,DOSAGE FORM: UNSPECIFIED
  6. ABIRATERONE. [Suspect]
     Active Substance: ABIRATERONE ACETATE
     Indication: PROSTATE CANCER
     Route: 048
     Dates: start: 201705
  7. BICALUTAMIDE. [Suspect]
     Active Substance: BICALUTAMIDE
     Indication: PROSTATE CANCER
     Dosage: DOSAGE FORM: UNSPECIFIED
     Route: 065
     Dates: start: 20141029

REACTIONS (6)
  - Drug resistance [Unknown]
  - Prostate cancer recurrent [Unknown]
  - Drug ineffective [Unknown]
  - Prostatic specific antigen increased [Unknown]
  - Prostate cancer [Unknown]
  - Malignant neoplasm progression [Unknown]
